FAERS Safety Report 8437147-9 (Version None)
Quarter: 2012Q2

REPORT INFORMATION
  Report Type: 
  Country: None (occurrence: None)
  Receive Date: 20120614
  Receipt Date: 20120416
  Transmission Date: 20120825
  Serious: No
  Sender: FDA-Public Use
  Company Number: US-AMGEN-USASP2012018182

PATIENT
  Age: 54 Year
  Sex: Female
  Weight: 78.005 kg

DRUGS (6)
  1. LOSARTAN POTASSIUM [Concomitant]
     Dosage: UNK
  2. FORADIL [Concomitant]
     Dosage: UNK
  3. METFORMIN HCL [Concomitant]
     Dosage: UNK
  4. ACTOS [Concomitant]
     Dosage: UNK
  5. ASMANEX TWISTHALER [Concomitant]
     Dosage: UNK
  6. PROLIA [Suspect]
     Indication: OSTEOPENIA
     Dosage: 60 MG, Q6MO
     Route: 058
     Dates: start: 20110610

REACTIONS (1)
  - TOOTH INFECTION [None]
